FAERS Safety Report 5006079-0 (Version None)
Quarter: 2006Q1

REPORT INFORMATION
  Report Type: 
  Country: None (occurrence: None)
  Receive Date: 20060328
  Receipt Date: 20060209
  Transmission Date: 20060701
  Serious: No
  Sender: FDA-Public Use
  Company Number: 06P-163-0324652-00

PATIENT

DRUGS (1)
  1. HUMIRA [Suspect]
     Dosage: 40 MG, SUBCUTANEOUS
     Route: 058

REACTIONS (1)
  - DISSEMINATED TUBERCULOSIS [None]
